FAERS Safety Report 6647997-7 (Version None)
Quarter: 2010Q1

REPORT INFORMATION
  Report Type: 
  Country: None (occurrence: None)
  Receive Date: 20100309
  Receipt Date: 20091125
  Transmission Date: 20100710
  Serious: Yes (Other)
  Sender: FDA-Public Use
  Company Number: 2009SP038982

PATIENT
  Age: 31 Year
  Sex: Female

DRUGS (4)
  1. SAPHRIS [Suspect]
     Indication: DRUG USE FOR UNKNOWN INDICATION
     Dosage: 5 MG; BID; SL
     Route: 060
     Dates: start: 20091028, end: 20091030
  2. TRAZODONE [Concomitant]
  3. PRISTIQ [Concomitant]
  4. CLONAZEPAM [Concomitant]

REACTIONS (2)
  - AKATHISIA [None]
  - DEPRESSION [None]
